FAERS Safety Report 19820114 (Version 5)
Quarter: 2022Q3

REPORT INFORMATION
  Report Type: Report from Study
  Country: US (occurrence: US)
  Receive Date: 20210913
  Receipt Date: 20220701
  Transmission Date: 20221027
  Serious: No
  Sender: FDA-Public Use
  Company Number: NVSC2021US205824

PATIENT
  Sex: Female

DRUGS (2)
  1. COSENTYX [Suspect]
     Active Substance: SECUKINUMAB
     Indication: Psoriasis
     Dosage: 150 MG, QW (ONCE WEEKLY FOR 5 WEEKS)
     Route: 058
     Dates: start: 20210719
  2. COSENTYX [Suspect]
     Active Substance: SECUKINUMAB
     Indication: Psoriasis
     Dosage: 150 MG, QMO
     Route: 058
     Dates: start: 20210719

REACTIONS (9)
  - Somnolence [Unknown]
  - Arthralgia [Unknown]
  - Injection site bruising [Unknown]
  - Condition aggravated [Unknown]
  - Psoriasis [Unknown]
  - Skin burning sensation [Unknown]
  - Pruritus [Unknown]
  - Pain [Unknown]
  - Product dose omission issue [Unknown]
